FAERS Safety Report 8993407 (Version 3)
Quarter: 2013Q1

REPORT INFORMATION
  Report Type: Report from Study
  Country: US (occurrence: US)
  Receive Date: 20130102
  Receipt Date: 20130312
  Transmission Date: 20140127
  Serious: Yes (Hospitalization, Other)
  Sender: FDA-Public Use
  Company Number: US-ASTELLAS-2013US000011

PATIENT
  Age: 70 Year
  Sex: Male

DRUGS (3)
  1. ERLOTINIB TABLET [Suspect]
     Indication: HEPATIC CANCER
     Dosage: UNK
     Route: 048
  2. BEVACIZUMAB [Suspect]
     Indication: HEPATIC CANCER
     Dosage: UNK
     Route: 065
  3. NSAID^S [Concomitant]
     Indication: ARTHRALGIA
     Dosage: UNK
     Route: 065

REACTIONS (6)
  - Off label use [Unknown]
  - Anaemia [Recovering/Resolving]
  - Varices oesophageal [Unknown]
  - Duodenal ulcer [Unknown]
  - Bronchitis [Unknown]
  - Asthenia [Unknown]
